FAERS Safety Report 13834173 (Version 6)
Quarter: 2017Q4

REPORT INFORMATION
  Report Type: Spontaneous
  Country: US (occurrence: US)
  Receive Date: 20170804
  Receipt Date: 20171206
  Transmission Date: 20180320
  Serious: Yes (Hospitalization, Other)
  Sender: FDA-Public Use
  Company Number: US-PFIZER INC-2017337295

PATIENT
  Age: 59 Year
  Sex: Female
  Weight: 72.57 kg

DRUGS (9)
  1. IBRANCE [Suspect]
     Active Substance: PALBOCICLIB
     Indication: BREAST CANCER METASTATIC
     Dosage: 125 MG, CYCLIC (ONCE A DAY FOR 21 DAYS AND THEN OFF FOR 7 DAYS)
     Route: 048
     Dates: start: 201612, end: 20170728
  2. XGEVA [Concomitant]
     Active Substance: DENOSUMAB
     Indication: BREAST CANCER METASTATIC
     Dosage: UNK (ONCE IN EVERY 28 DAYS)
     Dates: start: 2015
  3. FASLODEX [Concomitant]
     Active Substance: FULVESTRANT
     Dosage: UNK (ONCE IN EVERY 28 DAYS)
     Dates: start: 201612
  4. Z-PACK [Concomitant]
     Active Substance: AZITHROMYCIN DIHYDRATE
     Dosage: UNK
  5. ATIVAN [Concomitant]
     Active Substance: LORAZEPAM
     Dosage: 1 MG, 1X/DAY (NIGHTLY)
  6. DUONEB [Concomitant]
     Active Substance: ALBUTEROL SULFATE\IPRATROPIUM BROMIDE
     Dosage: UNK (Q.1 D)
  7. IBRANCE [Suspect]
     Active Substance: PALBOCICLIB
     Dosage: 100 MG, CYCLIC (ONCE A DAY FOR 21 DAYS, 7 DAYS OFF)
  8. IBRANCE [Suspect]
     Active Substance: PALBOCICLIB
     Dosage: 75 MG, CYCLIC (QD, TAKE FOR 21 DAYS EVERY 28 DAYS)
     Route: 048
     Dates: start: 201701
  9. HYCODAN [Concomitant]
     Active Substance: HOMATROPINE METHYLBROMIDE\HYDROCODONE BITARTRATE
     Dosage: UNK UNK, 1X/DAY (1 TEASPOON NIGHTLY)

REACTIONS (14)
  - Malaise [Unknown]
  - Pneumonitis [Unknown]
  - Wheezing [Unknown]
  - White blood cell count decreased [Unknown]
  - Spinal osteoarthritis [Unknown]
  - Asthenia [Unknown]
  - Pneumonia [Recovered/Resolved]
  - Febrile neutropenia [Recovered/Resolved]
  - Atelectasis [Unknown]
  - Bronchitis [Unknown]
  - Haemangioma [Unknown]
  - Food poisoning [Recovered/Resolved]
  - Pyrexia [Recovered/Resolved]
  - Alveolitis [Unknown]

NARRATIVE: CASE EVENT DATE: 201707
